FAERS Safety Report 8006349-8 (Version None)
Quarter: 2011Q4

REPORT INFORMATION
  Report Type: 
  Country: None (occurrence: None)
  Receive Date: 20111226
  Receipt Date: 20111221
  Transmission Date: 20120403
  Serious: Yes (Death)
  Sender: FDA-Public Use
  Company Number: PHEH2011US06515

PATIENT
  Sex: Female

DRUGS (4)
  1. CELEBREX [Concomitant]
     Route: 065
  2. MIRALAX [Concomitant]
     Route: 065
  3. GLEEVEC [Suspect]
     Indication: LEUKAEMIA
     Dosage: 100 MG, BID
     Route: 048
     Dates: start: 20110316, end: 20110801
  4. CALCIUM [Concomitant]
     Route: 065

REACTIONS (1)
  - DEATH [None]
